FAERS Safety Report 4482638-9 (Version None)
Quarter: 2004Q3

REPORT INFORMATION
  Report Type: 
  Country: None (occurrence: None)
  Receive Date: 20040921
  Receipt Date: 20040611
  Transmission Date: 20050211
  Serious: Yes (Hospitalization)
  Sender: FDA-Public Use
  Company Number: 163-20785-04060445

PATIENT
  Age: 82 Year
  Sex: Female

DRUGS (1)
  1. THALOMID [Suspect]
     Indication: MULTIPLE MYELOMA
     Dosage: 300 MG, DAILY, ORAL
     Route: 048
     Dates: start: 20030826, end: 20040401

REACTIONS (5)
  - ASTHENIA [None]
  - HYPOXIA [None]
  - NEUROPATHY PERIPHERAL [None]
  - PLEURAL EFFUSION [None]
  - PNEUMONIA [None]
